FAERS Safety Report 18994785 (Version 1)
Quarter: 2021Q1

REPORT INFORMATION
  Report Type: Spontaneous
  Country: GB (occurrence: GB)
  Receive Date: 20210310
  Receipt Date: 20210310
  Transmission Date: 20210420
  Serious: Yes (Disabling, Other)
  Sender: FDA-Public Use
  Company Number: GB-FERRINGPH-2021FE01317

PATIENT
  Age: 55 Year
  Sex: Female
  Weight: 70.76 kg

DRUGS (1)
  1. PICOLAX (ANHYDROUS CITRIC ACID\MAGNESIUM OXIDE\SODIUM PICOSULFATE) [Suspect]
     Active Substance: ANHYDROUS CITRIC ACID\MAGNESIUM OXIDE\SODIUM PICOSULFATE
     Indication: BOWEL PREPARATION
     Dosage: 3 SACHETS OF POWDER TO DISSOLVE IN WATER
     Route: 048
     Dates: start: 20141009, end: 20141010

REACTIONS (6)
  - Hot flush [Recovered/Resolved with Sequelae]
  - Hiatus hernia [Not Recovered/Not Resolved]
  - Urticaria [Recovered/Resolved with Sequelae]
  - Prescribed overdose [Recovered/Resolved]
  - Intussusception [Not Recovered/Not Resolved]
  - Swelling face [Recovered/Resolved with Sequelae]

NARRATIVE: CASE EVENT DATE: 20141009
